FAERS Safety Report 6796279-1 (Version None)
Quarter: 2010Q2

REPORT INFORMATION
  Report Type: 
  Country: None (occurrence: None)
  Receive Date: 20100624
  Receipt Date: 20100624
  Transmission Date: 20101027
  Serious: No
  Sender: FDA-Public Use
  Company Number: None

PATIENT
  Age: 53 Year
  Sex: Male
  Weight: 132.4503 kg

DRUGS (1)
  1. MIXED AMPHETAMINE 15MG TABLETS SALTS BARR [Suspect]
     Indication: ATTENTION DEFICIT/HYPERACTIVITY DISORDER
     Dosage: 15MG TABLETS PO
     Route: 048
     Dates: start: 20100603, end: 20100608

REACTIONS (1)
  - DRUG INEFFECTIVE [None]
